FAERS Safety Report 4407922-6 (Version None)
Quarter: 2004Q3

REPORT INFORMATION
  Report Type: 
  Country: None (occurrence: None)
  Receive Date: 20040721
  Receipt Date: 20040705
  Transmission Date: 20050211
  Serious: Yes (Disabling)
  Sender: FDA-Public Use
  Company Number: 2004AC00175

PATIENT
  Age: 54 Year
  Sex: Female

DRUGS (5)
  1. LIDOCAINE [Suspect]
     Indication: CATARACT OPERATION
     Dosage: 5-10 ML MIXTURE OF EQUAL PROPORTIONS OF LIDOCAINE AND BUPIVACAINE
  2. LIDOCAINE [Suspect]
     Indication: LOCAL ANAESTHESIA
     Dosage: 5-10 ML MIXTURE OF EQUAL PROPORTIONS OF LIDOCAINE AND BUPIVACAINE
  3. BUPIVACAINE [Suspect]
     Indication: CATARACT OPERATION
     Dosage: 5-10 ML MIXTURE OF EQUAL PROPORTIONS OF LIDOCAINE AND BUPIVACAINE
  4. BUPIVACAINE [Suspect]
     Indication: LOCAL ANAESTHESIA
     Dosage: 5-10 ML MIXTURE OF EQUAL PROPORTIONS OF LIDOCAINE AND BUPIVACAINE
  5. PROPOFOL [Concomitant]

REACTIONS (6)
  - ANAESTHETIC COMPLICATION [None]
  - DIPLOPIA [None]
  - MEDICATION ERROR [None]
  - MUSCLE NECROSIS [None]
  - MYOSITIS [None]
  - OPHTHALMOPLEGIA [None]
